FAERS Safety Report 9186951 (Version 1)
Quarter: 2013Q1

REPORT INFORMATION
  Report Type: Spontaneous
  Country: ES (occurrence: ES)
  Receive Date: 20130325
  Receipt Date: 20130325
  Transmission Date: 20140127
  Serious: Yes (Hospitalization)
  Sender: FDA-Public Use
  Company Number: PHHY2013ES028767

PATIENT
  Sex: 0

DRUGS (1)
  1. TASIGNA [Suspect]

REACTIONS (1)
  - Infarction [Unknown]
